FAERS Safety Report 25852360 (Version 3)
Quarter: 2025Q4

REPORT INFORMATION
  Report Type: Report from Study
  Country: JP (occurrence: JP)
  Receive Date: 20250926
  Receipt Date: 20251121
  Transmission Date: 20260118
  Serious: Yes (Hospitalization, Other)
  Sender: BIOGEN
  Company Number: JP-BIOGEN-2025BI01322509

PATIENT
  Age: 50 Year
  Sex: Male

DRUGS (5)
  1. SPINRAZA [Suspect]
     Active Substance: NUSINERSEN
     Indication: Spinal muscular atrophy
  2. SPINRAZA [Suspect]
     Active Substance: NUSINERSEN
  3. SPINRAZA [Suspect]
     Active Substance: NUSINERSEN
     Dates: start: 20180719, end: 20230322
  4. SPINRAZA [Suspect]
     Active Substance: NUSINERSEN
  5. XYLOCAINE SYRINGE [Concomitant]
     Indication: Anaesthesia procedure
     Dosage: DOSAGE TEXT:AT EACH SPINRAZA ADMINISTRATION

REACTIONS (1)
  - Cerebral infarction [Recovered/Resolved with Sequelae]
